FAERS Safety Report 19853769 (Version 1)
Quarter: 2021Q3

REPORT INFORMATION
  Report Type: Spontaneous
  Country: ES (occurrence: ES)
  Receive Date: 20210920
  Receipt Date: 20210920
  Transmission Date: 20211014
  Serious: Yes (Other)
  Sender: FDA-Public Use
  Company Number: ES-CELLTRION INC.-2021ES012508

PATIENT

DRUGS (3)
  1. BENDAMUSTINE HYDROCHLORIDE. [Suspect]
     Active Substance: BENDAMUSTINE HYDROCHLORIDE
     Indication: FOLLICULAR LYMPHOMA STAGE IV
     Dosage: 100?90 MG/M2 ON DAYS DAY 1?2 IN 28 DAY CYCLE, (6 CYCLES)
     Route: 042
  2. RITUXIMAB. [Suspect]
     Active Substance: RITUXIMAB
     Indication: FOLLICULAR LYMPHOMA STAGE IV
     Dosage: 375 MG/M2, CYCLIC (ON DAY 1 IN 28?DAY CYCLES, 6 CYCLES)
     Route: 065
  3. RITUXIMAB. [Suspect]
     Active Substance: RITUXIMAB
     Dosage: 375 MG/M2, CYCLIC (EVERY 8 WEEKS FOR 2 YEARS)
     Route: 042

REACTIONS (8)
  - Staphylococcal infection [Unknown]
  - Oral candidiasis [Unknown]
  - Candida infection [Unknown]
  - Enterobacter infection [Unknown]
  - CD4 lymphocytes decreased [Unknown]
  - Product use issue [Unknown]
  - Device related infection [Unknown]
  - Enterobacter bacteraemia [Unknown]
